FAERS Safety Report 8013758-X (Version None)
Quarter: 2011Q4

REPORT INFORMATION
  Report Type: 
  Country: None (occurrence: None)
  Receive Date: 20111229
  Receipt Date: 20111217
  Transmission Date: 20120403
  Serious: Yes (Other)
  Sender: FDA-Public Use
  Company Number: CA-ELI_LILLY_AND_COMPANY-CA201112005285

PATIENT
  Age: 75 Year
  Sex: Female

DRUGS (7)
  1. FORTEO [Suspect]
     Indication: OSTEOPOROSIS
     Dosage: 20 UG, QD
     Route: 058
     Dates: start: 20111202
  2. INDAPAMIDE [Concomitant]
  3. ASPIRIN [Concomitant]
  4. PRAVASTATIN [Concomitant]
  5. RAMIPRIL [Concomitant]
  6. VITAMIN D [Concomitant]
  7. CALCIUM ACETATE [Concomitant]

REACTIONS (3)
  - DYSPNOEA [None]
  - ANGINA PECTORIS [None]
  - ASTHMA [None]
